FAERS Safety Report 10669999 (Version 3)
Quarter: 2015Q3

REPORT INFORMATION
  Report Type: Spontaneous
  Country: TR (occurrence: TR)
  Receive Date: 20141223
  Receipt Date: 20150909
  Transmission Date: 20151125
  Serious: No
  Sender: FDA-Public Use
  Company Number: TR-AMGEN-TURSP2014099179

PATIENT
  Age: 70 Year
  Sex: Female

DRUGS (1)
  1. ENBREL [Suspect]
     Active Substance: ETANERCEPT
     Indication: RHEUMATOID ARTHRITIS
     Dosage: 50 MG, 2X/WEEK
     Route: 058
     Dates: start: 201406, end: 201409

REACTIONS (1)
  - Dyspnoea [Recovered/Resolved]
